FAERS Safety Report 26119025 (Version 2)
Quarter: 2025Q4

REPORT INFORMATION
  Report Type: Report from Study
  Country: GB (occurrence: GB)
  Receive Date: 20251204
  Receipt Date: 20251211
  Transmission Date: 20260117
  Serious: Yes (Hospitalization)
  Sender: TEVA
  Company Number: GB-TEVA-VS-3398206

PATIENT
  Age: 61 Year
  Sex: Female

DRUGS (1)
  1. OCTREOTIDE [Suspect]
     Active Substance: OCTREOTIDE
     Indication: Product used for unknown indication
     Route: 065
     Dates: end: 20251126

REACTIONS (2)
  - Post procedural infection [Unknown]
  - Hip surgery [Unknown]

NARRATIVE: CASE EVENT DATE: 20250101
